FAERS Safety Report 10073524 (Version 1)
Quarter: 2014Q2

REPORT INFORMATION
  Report Type: Report from Study
  Country: GB (occurrence: GB)
  Receive Date: 20140411
  Receipt Date: 20140411
  Transmission Date: 20141212
  Serious: Yes (Hospitalization)
  Sender: FDA-Public Use
  Company Number: GB-ABBVIE-14P-167-1221526-00

PATIENT
  Age: 43 Year
  Sex: Male
  Weight: 84 kg

DRUGS (1)
  1. HUMIRA [Suspect]
     Indication: PSORIASIS
     Route: 058
     Dates: start: 20120115, end: 20130415

REACTIONS (6)
  - Weight bearing difficulty [Recovered/Resolved]
  - Groin pain [Recovered/Resolved]
  - Pyrexia [Recovered/Resolved]
  - Psoas abscess [Recovered/Resolved]
  - Arthritis bacterial [Recovered/Resolved]
  - Liver function test abnormal [Recovered/Resolved]
